FAERS Safety Report 8847622 (Version 2)
Quarter: 2013Q3

REPORT INFORMATION
  Report Type: Spontaneous
  Country: US (occurrence: US)
  Receive Date: 20121018
  Receipt Date: 20130711
  Transmission Date: 20140515
  Serious: Yes (Other)
  Sender: FDA-Public Use
  Company Number: CHPA2012US021759

PATIENT
  Age: 62 Year
  Sex: Female

DRUGS (2)
  1. TRIAMINIC CHEST + NASAL CONGESTION [Suspect]
     Indication: UPPER RESPIRATORY TRACT CONGESTION
     Dosage: HALF TSP, AS NEEDED
     Route: 048
  2. 4 WAY UNKNOWN [Suspect]
     Dosage: UNK, UNK

REACTIONS (10)
  - Asthma [Unknown]
  - Bronchitis [Unknown]
  - Burning sensation [Unknown]
  - Dyspnoea [Unknown]
  - Pneumonia [Unknown]
  - Tooth abscess [Not Recovered/Not Resolved]
  - Dysphonia [Unknown]
  - Nasal congestion [Not Recovered/Not Resolved]
  - Hypersensitivity [Unknown]
  - Incorrect dose administered [Unknown]
